FAERS Safety Report 25889062 (Version 2)
Quarter: 2025Q4

REPORT INFORMATION
  Report Type: Spontaneous
  Country: EU (occurrence: EU)
  Receive Date: 20251007
  Receipt Date: 20251015
  Transmission Date: 20260117
  Serious: Yes (Hospitalization, Other)
  Sender: AUROBINDO
  Company Number: EU-AUROBINDO-AUR-APL-2025-050754

PATIENT
  Age: 10 Year
  Sex: Female

DRUGS (4)
  1. AMOXICILLIN\CLAVULANIC ACID [Suspect]
     Active Substance: AMOXICILLIN\CLAVULANIC ACID
     Indication: Pharyngitis
     Dosage: UNK
     Route: 065
  2. AMOXICILLIN\CLAVULANIC ACID [Suspect]
     Active Substance: AMOXICILLIN\CLAVULANIC ACID
     Indication: Oropharyngeal pain
  3. URSODIOL [Suspect]
     Active Substance: URSODIOL
     Indication: Hepatitis
     Dosage: UNK
     Route: 065
  4. IRON [Concomitant]
     Active Substance: IRON
     Indication: Anaemia
     Dosage: UNK
     Route: 065

REACTIONS (7)
  - Hepatitis [Recovered/Resolved]
  - Coeliac disease [Recovered/Resolved]
  - Swelling face [Recovered/Resolved]
  - Swelling of eyelid [Recovered/Resolved]
  - Infectious mononucleosis [Recovered/Resolved]
  - Therapy partial responder [Recovered/Resolved]
  - Rash [Recovered/Resolved]
